FAERS Safety Report 17876681 (Version 3)
Quarter: 2020Q4

REPORT INFORMATION
  Report Type: Spontaneous
  Country: US (occurrence: US)
  Receive Date: 20200609
  Receipt Date: 20201125
  Transmission Date: 20210113
  Serious: No
  Sender: FDA-Public Use
  Company Number: US-PFIZER INC-2020224241

PATIENT
  Age: 69 Year
  Sex: Female
  Weight: 95.71 kg

DRUGS (2)
  1. FASLODEX [Concomitant]
     Active Substance: FULVESTRANT
     Dosage: UNK
  2. IBRANCE [Suspect]
     Active Substance: PALBOCICLIB
     Indication: BREAST CANCER METASTATIC
     Dosage: 75 MG, CYCLIC(21 DAYS ON AND 7 DAYS OFF)

REACTIONS (3)
  - Weight increased [Unknown]
  - White blood cell count increased [Unknown]
  - Red blood cell count increased [Unknown]
